FAERS Safety Report 20174615 (Version 2)
Quarter: 2022Q1

REPORT INFORMATION
  Report Type: Spontaneous
  Country: US (occurrence: US)
  Receive Date: 20211213
  Receipt Date: 20220117
  Transmission Date: 20220423
  Serious: No
  Sender: FDA-Public Use
  Company Number: US-TEVA-2021-US-1984391

PATIENT
  Age: 78 Year
  Sex: Female

DRUGS (1)
  1. BUDESONIDE [Suspect]
     Active Substance: BUDESONIDE
     Dosage: STRENGTH: 1 MG / 2 ML
     Route: 055
     Dates: start: 202003

REACTIONS (1)
  - Drug ineffective [Unknown]
